FAERS Safety Report 8316356-3 (Version None)
Quarter: 2012Q2

REPORT INFORMATION
  Report Type: 
  Country: None (occurrence: None)
  Receive Date: 20120427
  Receipt Date: 20120425
  Transmission Date: 20120825
  Serious: No
  Sender: FDA-Public Use
  Company Number: US-PFIZER INC-2012101288

PATIENT
  Sex: Male
  Weight: 88.889 kg

DRUGS (4)
  1. CHANTIX [Suspect]
     Dosage: UNK
     Route: 048
     Dates: start: 20120402, end: 20120401
  2. CHANTIX [Suspect]
     Indication: SMOKING CESSATION THERAPY
     Dosage: 0.5 MG, 1X/DAY
     Route: 048
  3. LISINOPRIL [Concomitant]
     Dosage: UNK
  4. CHANTIX [Suspect]
     Dosage: 1 MG, 2X/DAY
     Route: 048
     Dates: start: 20120401

REACTIONS (9)
  - INSOMNIA [None]
  - WITHDRAWAL SYNDROME [None]
  - FEELING ABNORMAL [None]
  - ANXIETY [None]
  - BLOOD CHOLESTEROL INCREASED [None]
  - NERVOUSNESS [None]
  - CONSTIPATION [None]
  - SLEEP DISORDER [None]
  - ABNORMAL DREAMS [None]
